FAERS Safety Report 22047881 (Version 2)
Quarter: 2023Q2

REPORT INFORMATION
  Report Type: Spontaneous
  Country: JP (occurrence: JP)
  Receive Date: 20230301
  Receipt Date: 20230405
  Transmission Date: 20230722
  Serious: Yes (Other)
  Sender: FDA-Public Use
  Company Number: JP-ASTELLAS-2023JP002561

PATIENT
  Age: 83 Year
  Sex: Male

DRUGS (1)
  1. XOSPATA [Suspect]
     Active Substance: GILTERITINIB
     Indication: Acute myeloid leukaemia refractory
     Route: 048
     Dates: start: 20210812, end: 202209

REACTIONS (2)
  - Acute myeloid leukaemia recurrent [Unknown]
  - Gene mutation identification test negative [Unknown]

NARRATIVE: CASE EVENT DATE: 20220901
